FAERS Safety Report 18977912 (Version 2)
Quarter: 2021Q1

REPORT INFORMATION
  Report Type: Report from Study
  Country: CO (occurrence: CO)
  Receive Date: 20210306
  Receipt Date: 20210315
  Transmission Date: 20210420
  Serious: Yes (Death, Hospitalization)
  Sender: FDA-Public Use
  Company Number: NVSC2021CO052413

PATIENT
  Age: 53 Year
  Sex: Female
  Weight: 38 kg

DRUGS (3)
  1. SANDOSTATIN LAR DEPOT [Suspect]
     Active Substance: OCTREOTIDE ACETATE
  2. SANDOSTATIN LAR DEPOT [Suspect]
     Active Substance: OCTREOTIDE ACETATE
  3. SANDOSTATIN LAR DEPOT [Suspect]
     Active Substance: OCTREOTIDE ACETATE
     Indication: GASTROENTEROPANCREATIC NEUROENDOCRINE TUMOUR DISEASE
     Dosage: 30 MG, QMO
     Route: 030
     Dates: start: 201812, end: 202102

REACTIONS (7)
  - Asthenia [Unknown]
  - Gastroenteropancreatic neuroendocrine tumour disease [Fatal]
  - Neoplasm malignant [Unknown]
  - Decreased appetite [Unknown]
  - Vomiting [Unknown]
  - Abnormal behaviour [Unknown]
  - Abdominal pain [Unknown]

NARRATIVE: CASE EVENT DATE: 202101
